FAERS Safety Report 22998284 (Version 3)
Quarter: 2024Q1

REPORT INFORMATION
  Report Type: Spontaneous
  Country: US (occurrence: US)
  Receive Date: 20230928
  Receipt Date: 20240318
  Transmission Date: 20240409
  Serious: Yes (Hospitalization, Disabling, Other)
  Sender: FDA-Public Use
  Company Number: US-ABBVIE-5423366

PATIENT
  Age: 85 Year
  Sex: Female

DRUGS (1)
  1. REFRESH CELLUVISC [Suspect]
     Active Substance: CARBOXYMETHYLCELLULOSE SODIUM
     Indication: Dry eye
     Dosage: 1 DROP EACH EYE, 3-4 TIME PER DAY
     Route: 047

REACTIONS (14)
  - Hiatus hernia [Not Recovered/Not Resolved]
  - Pain [Not Recovered/Not Resolved]
  - Speech disorder [Recovered/Resolved]
  - Dysphagia [Recovered/Resolved]
  - Visual impairment [Unknown]
  - Ophthalmic herpes zoster [Recovered/Resolved]
  - Therapeutic response decreased [Unknown]
  - Product packaging quantity issue [Unknown]
  - Eye pain [Not Recovered/Not Resolved]
  - Product use complaint [Unknown]
  - Blindness unilateral [Not Recovered/Not Resolved]
  - Choking sensation [Recovered/Resolved]
  - Eye infection bacterial [Unknown]
  - Eye infection fungal [Unknown]

NARRATIVE: CASE EVENT DATE: 20230906
